FAERS Safety Report 21692698 (Version 3)
Quarter: 2024Q3

REPORT INFORMATION
  Report Type: Spontaneous
  Country: GB (occurrence: GB)
  Receive Date: 20221207
  Receipt Date: 20240712
  Transmission Date: 20241016
  Serious: No
  Sender: ALKEM
  Company Number: None

PATIENT
  Age: 39 Year
  Sex: Female
  Weight: 62 kg

DRUGS (5)
  1. TOLVAPTAN [Suspect]
     Active Substance: TOLVAPTAN
     Indication: Congenital cystic kidney disease
     Dosage: 45 MILLIGRAM, QD (AM) (1 DAY) (TABLET)
     Route: 048
     Dates: start: 20200217, end: 20200512
  2. TOLVAPTAN [Suspect]
     Active Substance: TOLVAPTAN
     Dosage: 15 MILLIGRAM, QD (PM) (1 DAY) (TABLET)
     Route: 048
     Dates: start: 20200217, end: 20200512
  3. TOLVAPTAN [Suspect]
     Active Substance: TOLVAPTAN
     Dosage: 60 MILLIGRAM, QD (AM) (1 DAY) TABLET
     Route: 048
     Dates: start: 20200512, end: 20201117
  4. TOLVAPTAN [Suspect]
     Active Substance: TOLVAPTAN
     Dosage: 30 MILLIGRAM, QD (PM) (1 DAY) (TABLET)
     Route: 048
     Dates: start: 20200512, end: 20201117
  5. ENALAPRIL [Concomitant]
     Active Substance: ENALAPRIL
     Indication: Hypertension
     Dosage: 5 MILLIGRAM, QD (1 DAY)
     Route: 048
     Dates: start: 20180306

REACTIONS (1)
  - Gamma-glutamyltransferase increased [Recovered/Resolved]

NARRATIVE: CASE EVENT DATE: 20201117
